FAERS Safety Report 8939852 (Version 4)
Quarter: 2012Q4

REPORT INFORMATION
  Report Type: Report from Study
  Country: ES (occurrence: ES)
  Receive Date: 20121203
  Receipt Date: 20121221
  Transmission Date: 20130627
  Serious: Yes (Death, Hospitalization, Other)
  Sender: FDA-Public Use
  Company Number: ES-PFIZER INC-2012292404

PATIENT
  Age: 76 Year
  Sex: Male

DRUGS (14)
  1. AXITINIB [Suspect]
     Indication: CLEAR CELL CARCINOMA OF THE KIDNEY
     Dosage: 5 mg, 2x/day
     Route: 048
     Dates: start: 20121023, end: 20121110
  2. BISOPROLOL [Concomitant]
     Dosage: 5 mg, 1x/day
     Dates: start: 201006
  3. DUTASTERIDE/TAMSULOSIN HCL [Concomitant]
     Dosage: 1 DF, 1x/day (0.5-0.4)
     Dates: start: 201104
  4. FUROSEMIDE [Concomitant]
     Dosage: 40 mg, 1x/day
     Dates: start: 20121031
  5. LORMETAZEPAM [Concomitant]
     Dosage: 2 mg, UNK
     Dates: start: 201110
  6. OMEPRAZOL [Concomitant]
     Dosage: 20 mg, 1x/day
     Dates: start: 20120312
  7. PARACETAMOL [Concomitant]
     Dosage: 1 g, 3x/day
     Dates: start: 20121031
  8. PRAVASTATIN [Concomitant]
     Dosage: 40 mg, 1x/day
     Dates: start: 200912
  9. PREDNISONE [Concomitant]
     Dosage: 30 mg, 1x/day
     Dates: start: 20121009
  10. MICARDIS HCT [Concomitant]
     Dosage: 12.5 mg/80 mg, 1x/day
     Route: 048
     Dates: start: 201006
  11. ZYLORIC [Concomitant]
     Dosage: 300 mg, 1x/day
     Dates: start: 20121009
  12. TRAMADOL [Concomitant]
     Dosage: 50 mg, 3x/day
     Route: 048
  13. KILOR [Concomitant]
     Dosage: 1 DF, UNK
     Dates: start: 20121009
  14. NEORECORMON [Concomitant]
     Dosage: 30000 IU, weekly
     Dates: start: 20121009

REACTIONS (7)
  - Disease progression [Fatal]
  - Renal cell carcinoma [Fatal]
  - Hypertensive crisis [Recovered/Resolved]
  - Grand mal convulsion [Recovered/Resolved]
  - Confusional state [Not Recovered/Not Resolved]
  - Pneumonia aspiration [Recovered/Resolved]
  - Respiratory tract infection [Fatal]
